FAERS Safety Report 5772347-8 (Version None)
Quarter: 2008Q2

REPORT INFORMATION
  Report Type: 
  Country: None (occurrence: None)
  Receive Date: 20080613
  Receipt Date: 20080604
  Transmission Date: 20081010
  Serious: Yes (Other)
  Sender: FDA-Public Use
  Company Number: GB-ROCHE-569668

PATIENT
  Sex: Female
  Weight: 90.2 kg

DRUGS (8)
  1. ORLISTAT [Suspect]
     Indication: OBESITY
     Route: 048
     Dates: start: 20080204
  2. BENDROFLUMETHIAZIDE [Concomitant]
     Indication: HYPERTENSION
     Route: 048
  3. ASPIRIN [Concomitant]
     Route: 048
  4. GLYCERYL TRINITRATE SPRAY [Concomitant]
     Route: 055
  5. NICORANDIL [Concomitant]
     Route: 048
  6. ATENOLOL [Concomitant]
     Indication: HYPERTENSION
     Route: 048
  7. SIMVASTATIN [Concomitant]
     Route: 048
  8. AMLODIPINE [Concomitant]
     Indication: HYPERTENSION
     Route: 048

REACTIONS (2)
  - ARTHRALGIA [None]
  - TYPE 2 DIABETES MELLITUS [None]
